FAERS Safety Report 7197190-7 (Version None)
Quarter: 2010Q4

REPORT INFORMATION
  Report Type: 
  Country: None (occurrence: None)
  Receive Date: 20101224
  Receipt Date: 20101216
  Transmission Date: 20110411
  Serious: Yes (Other)
  Sender: FDA-Public Use
  Company Number: PHHO2010US19124

PATIENT
  Sex: Male
  Weight: 99.8 kg

DRUGS (1)
  1. AFINITOR [Suspect]
     Indication: METASTATIC RENAL CELL CARCINOMA
     Dosage: 10 MG, UNK
     Dates: start: 20100401, end: 20101209

REACTIONS (2)
  - COLITIS [None]
  - DIARRHOEA [None]
